FAERS Safety Report 6508291-8 (Version None)
Quarter: 2009Q4

REPORT INFORMATION
  Report Type: 
  Country: None (occurrence: None)
  Receive Date: 20091221
  Receipt Date: 20081017
  Transmission Date: 20100525
  Serious: No
  Sender: FDA-Public Use
  Company Number: US-ASTRAZENECA-2008UW23064

PATIENT
  Age: 62 Year
  Sex: Female

DRUGS (2)
  1. CRESTOR [Suspect]
     Dosage: 10 MG - 20 MG
     Route: 048
  2. VYTORIN [Concomitant]

REACTIONS (2)
  - BLOOD TRIGLYCERIDES INCREASED [None]
  - HIGH DENSITY LIPOPROTEIN DECREASED [None]
